FAERS Safety Report 10378846 (Version 1)
Quarter: 2014Q1

REPORT INFORMATION
  Report Type: Spontaneous
  Country: US (occurrence: None)
  Receive Date: 20140306
  Receipt Date: 20140306
  Transmission Date: 20141002
  Serious: Yes (Disabling)
  Sender: FDA-Public Use
  Company Number: 163-21880-13051314

PATIENT
  Age: 80 Year
  Sex: Female

DRUGS (9)
  1. REVLIMID (LENALIDOMIDE) (25 MILLIGRAM, CAPSULES) [Suspect]
     Indication: PLASMA CELL MYELOMA
     Route: 048
     Dates: start: 201208
  2. CELEBREX (CELECOXIB) [Concomitant]
  3. DEXAMETHASONE [Concomitant]
  4. ATENOLOL [Concomitant]
  5. ASPIRIN (ACETYLSALICYLIC ACID) [Concomitant]
  6. SERTRALINE [Concomitant]
  7. NEXIUM (ESOMEPRAZOLE) [Concomitant]
  8. ALLOPURINOL [Concomitant]
  9. CALCIUM WITH D (CALCIUM WITH VITAMIN D) [Concomitant]

REACTIONS (1)
  - Neck pain [None]
